FAERS Safety Report 4446498-4 (Version None)
Quarter: 2004Q3

REPORT INFORMATION
  Report Type: 
  Country: None (occurrence: None)
  Receive Date: 20040902
  Receipt Date: 20040824
  Transmission Date: 20050211
  Serious: Yes (Hospitalization)
  Sender: FDA-Public Use
  Company Number: 2004PK01433

PATIENT
  Age: 50 Year
  Sex: Female

DRUGS (3)
  1. NOLVADEX [Suspect]
     Indication: BREAST CANCER
     Dosage: 20 MG DAILY PO
     Route: 048
     Dates: start: 20030321
  2. ZOLADEX [Suspect]
     Indication: BREAST CANCER
     Dosage: 3.6 MG MONTH SQ
     Dates: start: 20030301
  3. ZOLEDRONATE [Suspect]
     Indication: BREAST CANCER
     Dosage: 4 MG IV
     Route: 042
     Dates: start: 20030328

REACTIONS (1)
  - UTERINE POLYP [None]
